FAERS Safety Report 4719125-6 (Version None)
Quarter: 2005Q3

REPORT INFORMATION
  Report Type: 
  Country: None (occurrence: None)
  Receive Date: 20050720
  Receipt Date: 20050705
  Transmission Date: 20060218
  Serious: Yes (Other)
  Sender: FDA-Public Use
  Company Number: 2005098403

PATIENT
  Age: 44 Year
  Sex: Female
  Weight: 80 kg

DRUGS (2)
  1. SOMAVERT [Suspect]
     Indication: ACROMEGALY
     Dosage: 10 MG (10 MG, DAILY), SUBCUTANEOUS
     Route: 058
     Dates: start: 20040501
  2. DEXNON (LEVOTHYROXINE SODIUM) [Concomitant]

REACTIONS (5)
  - HEAT STROKE [None]
  - HYPERHIDROSIS [None]
  - INSULIN-LIKE GROWTH FACTOR INCREASED [None]
  - REFUSAL OF TREATMENT BY PATIENT [None]
  - SKIN IRRITATION [None]
